FAERS Safety Report 7955300 (Version 5)
Quarter: 2014Q4

REPORT INFORMATION
  Report Type: Spontaneous
  Country: US (occurrence: US)
  Receive Date: 20110523
  Receipt Date: 20141017
  Transmission Date: 20150529
  Serious: Yes (Hospitalization, Congenital Anomaly, Other)
  Sender: FDA-Public Use
  Company Number: US-PFIZER INC-2011105863

PATIENT
  Sex: Female
  Weight: 3.3 kg

DRUGS (3)
  1. EFFEXOR XR [Suspect]
     Active Substance: VENLAFAXINE HYDROCHLORIDE
     Indication: DEPRESSION
     Dosage: 150 MG, 1X/DAY
     Route: 064
     Dates: start: 2003
  2. PRENATAL VITAMINS [Concomitant]
     Active Substance: VITAMINS
     Dosage: UNK
     Route: 064
     Dates: start: 20091104
  3. FIORICET [Concomitant]
     Active Substance: ACETAMINOPHEN\BUTALBITAL\CAFFEINE
     Dosage: ^50-325-40^ ONE TABLET EVERY FOUR HOURS AS NEEDED NOT TO EXCEED SIX TABLETS PER 24HRS
     Route: 064

REACTIONS (8)
  - Foetal exposure during pregnancy [Unknown]
  - Premature baby [Unknown]
  - Atrial septal defect [Unknown]
  - Large for dates baby [Unknown]
  - Patent ductus arteriosus [Recovered/Resolved]
  - Pulmonary valve stenosis [Unknown]
  - Atrial septal defect [Unknown]
  - Umbilical cord abnormality [Unknown]

NARRATIVE: CASE EVENT DATE: 201001
